FAERS Safety Report 9809114 (Version 2)
Quarter: 2014Q1

REPORT INFORMATION
  Report Type: Spontaneous
  Country: GB (occurrence: GB)
  Receive Date: 20140110
  Receipt Date: 20140114
  Transmission Date: 20141002
  Serious: Yes (Other)
  Sender: FDA-Public Use
  Company Number: PHFR2014GB000565

PATIENT
  Age: 48 Year
  Sex: Male

DRUGS (2)
  1. CLOZARIL [Suspect]
     Dosage: UNK
     Route: 048
     Dates: start: 19970612
  2. CLOZARIL [Suspect]
     Dosage: UNK
     Route: 048
     Dates: start: 20010701

REACTIONS (2)
  - Nervous system disorder [Not Recovered/Not Resolved]
  - White blood cell count decreased [Recovered/Resolved]
